FAERS Safety Report 25796648 (Version 1)
Quarter: 2025Q3

REPORT INFORMATION
  Report Type: Spontaneous
  Country: US (occurrence: US)
  Receive Date: 20250912
  Receipt Date: 20250912
  Transmission Date: 20251020
  Serious: Yes (Other)
  Sender: NOVO NORDISK
  Company Number: US-NOVOPROD-1514992

PATIENT
  Age: 77 Year
  Sex: Female

DRUGS (2)
  1. WEGOVY [Suspect]
     Active Substance: SEMAGLUTIDE
     Indication: Weight control
     Dosage: 0.5 MG QW
     Route: 058
     Dates: start: 20250724
  2. WEGOVY [Suspect]
     Active Substance: SEMAGLUTIDE
     Indication: Weight control
     Dosage: UNK, QW
     Route: 058
     Dates: start: 20250818

REACTIONS (3)
  - Foot fracture [Recovering/Resolving]
  - Fall [Recovering/Resolving]
  - Nausea [Not Recovered/Not Resolved]
